FAERS Safety Report 14404057 (Version 1)
Quarter: 2018Q1

REPORT INFORMATION
  Report Type: Spontaneous
  Country: ES (occurrence: ES)
  Receive Date: 20180117
  Receipt Date: 20180117
  Transmission Date: 20180509
  Serious: Yes (Life-Threatening, Hospitalization)
  Sender: FDA-Public Use
  Company Number: ES-MYLANLABS-2018M1003507

PATIENT
  Age: 53 Year
  Sex: Male

DRUGS (6)
  1. DIGOXINA [Interacting]
     Active Substance: DIGOXIN
     Indication: ATRIAL FIBRILLATION
     Dosage: 1.5 MG, QW
     Route: 048
     Dates: start: 200905
  2. ACENOCUMAROL [Concomitant]
     Active Substance: ACENOCOUMAROL
     Indication: ATRIAL FIBRILLATION
     Route: 048
  3. FUROSEMIDE(1615A) [Concomitant]
     Indication: CARDIAC FAILURE
     Dosage: 20 MG, QD
     Route: 048
     Dates: start: 201305
  4. VERAPAMIL [Suspect]
     Active Substance: VERAPAMIL HYDROCHLORIDE
     Indication: ATRIAL FIBRILLATION
     Dosage: 160 MG, UNK
     Route: 048
     Dates: start: 20151118, end: 20160216
  5. ATENOLOL. [Interacting]
     Active Substance: ATENOLOL
     Indication: ATRIAL FIBRILLATION
     Dosage: 25 MG, QD
     Route: 048
     Dates: start: 201305, end: 20160216
  6. METFORMIN [Concomitant]
     Active Substance: METFORMIN HYDROCHLORIDE
     Indication: TYPE 2 DIABETES MELLITUS
     Dosage: 850 MG, QD
     Route: 048
     Dates: start: 2009, end: 20160216

REACTIONS (2)
  - Medication error [Recovered/Resolved]
  - Cardiogenic shock [Recovered/Resolved]

NARRATIVE: CASE EVENT DATE: 20151118
